FAERS Safety Report 23670311 (Version 1)
Quarter: 2024Q1

REPORT INFORMATION
  Report Type: Spontaneous
  Country: US (occurrence: US)
  Receive Date: 20240325
  Receipt Date: 20240325
  Transmission Date: 20240410
  Serious: No
  Sender: FDA-Public Use
  Company Number: US-BoehringerIngelheim-2024-BI-017035

PATIENT
  Age: 76 Year
  Sex: Female

DRUGS (1)
  1. OLODATEROL HYDROCHLORIDE\TIOTROPIUM BROMIDE MONOHYDRATE [Suspect]
     Active Substance: OLODATEROL HYDROCHLORIDE\TIOTROPIUM BROMIDE MONOHYDRATE
     Indication: Product used for unknown indication
     Dosage: DAILY
     Route: 048

REACTIONS (5)
  - Osteoporosis [Unknown]
  - Aortic aneurysm [Unknown]
  - Chronic obstructive pulmonary disease [Unknown]
  - Vertigo [Unknown]
  - Mycotic allergy [Unknown]
